FAERS Safety Report 12824752 (Version 2)
Quarter: 2017Q1

REPORT INFORMATION
  Report Type: Spontaneous
  Country: SE (occurrence: SE)
  Receive Date: 20161007
  Receipt Date: 20170206
  Transmission Date: 20170428
  Serious: Yes (Disabling)
  Sender: FDA-Public Use
  Company Number: SE-TEVA-696246ISR

PATIENT
  Sex: Female

DRUGS (1)
  1. LETROZOL ACTAVIS [Suspect]
     Active Substance: LETROZOLE
     Indication: INFERTILITY FEMALE
     Route: 065
     Dates: end: 20160222

REACTIONS (3)
  - Hypoacusis [Unknown]
  - Product use issue [Unknown]
  - Tinnitus [Unknown]
